FAERS Safety Report 12138523 (Version 1)
Quarter: 2016Q1

REPORT INFORMATION
  Report Type: Spontaneous
  Country: US (occurrence: US)
  Receive Date: 20160302
  Receipt Date: 20160302
  Transmission Date: 20160526
  Serious: No
  Sender: FDA-Public Use
  Company Number: CHPA2016US002603

PATIENT
  Age: 55 Year
  Sex: Male

DRUGS (1)
  1. VOLTAREN [Suspect]
     Active Substance: DICLOFENAC SODIUM
     Indication: OSTEOARTHRITIS
     Dosage: 2 G, QD TO BID
     Route: 061
     Dates: start: 201511, end: 20160225

REACTIONS (4)
  - Off label use [Unknown]
  - Inappropriate schedule of drug administration [Unknown]
  - Gastrooesophageal reflux disease [Recovering/Resolving]
  - Concomitant disease aggravated [Recovering/Resolving]

NARRATIVE: CASE EVENT DATE: 201511
